FAERS Safety Report 23916541 (Version 1)
Quarter: 2024Q2

REPORT INFORMATION
  Report Type: Spontaneous
  Country: HR (occurrence: HR)
  Receive Date: 20240529
  Receipt Date: 20240529
  Transmission Date: 20240716
  Serious: Yes (Other)
  Sender: FDA-Public Use
  Company Number: HR-009507513-2405HRV005951

PATIENT
  Age: 68 Year
  Sex: Male

DRUGS (3)
  1. PACLITAXEL [Suspect]
     Active Substance: PACLITAXEL
     Indication: Squamous cell carcinoma of lung
     Dosage: UNK
     Route: 042
     Dates: start: 202307
  2. CARBOPLATIN [Suspect]
     Active Substance: CARBOPLATIN
     Indication: Squamous cell carcinoma of lung
     Dosage: UNK
     Route: 042
     Dates: start: 202307
  3. KEYTRUDA [Suspect]
     Active Substance: PEMBROLIZUMAB
     Indication: Squamous cell carcinoma of lung
     Dosage: UNK?FOA-SOLUTION FOR INJECTION
     Route: 042
     Dates: start: 202307

REACTIONS (14)
  - Colitis [Unknown]
  - Cerebral ischaemia [Unknown]
  - Pulmonary fibrosis [Unknown]
  - Lumbar vertebral fracture [Unknown]
  - Malignant neoplasm progression [Unknown]
  - Rotavirus test positive [Unknown]
  - Respiratory rate decreased [Unknown]
  - Dizziness [Unknown]
  - Asthenia [Unknown]
  - COVID-19 [Unknown]
  - Malaise [Unknown]
  - Blood pressure increased [Unknown]
  - Pain [Unknown]
  - Spondylolisthesis [Unknown]

NARRATIVE: CASE EVENT DATE: 20230901
